FAERS Safety Report 9652475 (Version 1)
Quarter: 2013Q4

REPORT INFORMATION
  Report Type: Spontaneous
  Country: US (occurrence: US)
  Receive Date: 20131029
  Receipt Date: 20131029
  Transmission Date: 20140711
  Serious: No
  Sender: FDA-Public Use
  Company Number: US-B.I. PHARMACEUTICALS,INC./RIDGEFIELD-2013-BI-33047BP

PATIENT
  Age: 78 Year
  Sex: Male
  Weight: 114 kg

DRUGS (3)
  1. COMBIVENT [Suspect]
     Indication: OXYGEN SATURATION DECREASED
     Dosage: STRENGTH: 20 MCG / 100 MCG; DAILY DOSE: 80 MCG / 400 MCG
     Route: 055
     Dates: start: 201307
  2. COMBIVENT [Suspect]
     Indication: DYSPNOEA EXERTIONAL
  3. CHROMIUM [Concomitant]
     Indication: BLOOD GLUCOSE
     Dosage: 200 MG
     Route: 048
     Dates: start: 201308

REACTIONS (2)
  - Oxygen saturation decreased [Recovered/Resolved]
  - Off label use [Not Recovered/Not Resolved]
